FAERS Safety Report 6721901-5 (Version None)
Quarter: 2010Q2

REPORT INFORMATION
  Report Type: 
  Country: None (occurrence: None)
  Receive Date: 20100512
  Receipt Date: 20100503
  Transmission Date: 20101027
  Serious: Yes (Other)
  Sender: FDA-Public Use
  Company Number: PHHY2010CA28355

PATIENT
  Sex: Female

DRUGS (11)
  1. ACLASTA [Suspect]
     Indication: OSTEOPOROSIS
     Dosage: UNK
     Route: 042
     Dates: start: 20090623
  2. ACTONEL [Concomitant]
  3. VITAMIN D [Concomitant]
  4. CALCIUM CARBONATE [Concomitant]
  5. AMERGE [Concomitant]
  6. COLACE [Concomitant]
  7. TYLENOL-500 [Concomitant]
  8. LACTULOSE [Concomitant]
  9. NEXIUM [Concomitant]
  10. DOMPERIDONE [Concomitant]
  11. ADALAT [Concomitant]

REACTIONS (4)
  - BRUXISM [None]
  - DENTAL OPERATION [None]
  - JAW DISORDER [None]
  - TOOTH DISORDER [None]
